FAERS Safety Report 8278977-6 (Version None)
Quarter: 2012Q2

REPORT INFORMATION
  Report Type: 
  Country: None (occurrence: None)
  Receive Date: 20120412
  Receipt Date: 20110314
  Transmission Date: 20120825
  Serious: No
  Sender: FDA-Public Use
  Company Number: US-ASTRAZENECA-2011SE00987

PATIENT
  Age: 57 Year
  Sex: Male

DRUGS (1)
  1. NEXIUM [Suspect]
     Route: 048

REACTIONS (4)
  - SPINAL CORD INJURY [None]
  - BACK PAIN [None]
  - ARTHROPATHY [None]
  - ROAD TRAFFIC ACCIDENT [None]
